FAERS Safety Report 9222762 (Version 1)
Quarter: 2013Q2

REPORT INFORMATION
  Report Type: Spontaneous
  Country: US (occurrence: US)
  Receive Date: 20130410
  Receipt Date: 20130410
  Transmission Date: 20140414
  Serious: Yes (Other)
  Sender: FDA-Public Use
  Company Number: US-SHIRE-ALL1-2013-02132

PATIENT
  Age: 9 Year
  Sex: Male

DRUGS (1)
  1. AGRYLIN [Suspect]
     Indication: ESSENTIAL THROMBOCYTHAEMIA
     Dosage: 0.5 MG, 3X/DAY:TID
     Route: 048
     Dates: start: 20010612, end: 20051010

REACTIONS (1)
  - Myelofibrosis [Recovered/Resolved]
